FAERS Safety Report 5237824-7 (Version None)
Quarter: 2007Q1

REPORT INFORMATION
  Report Type: 
  Country: None (occurrence: None)
  Receive Date: 20070214
  Receipt Date: 20070201
  Transmission Date: 20070707
  Serious: Yes (Hospitalization)
  Sender: FDA-Public Use
  Company Number: FR-ELI_LILLY_AND_COMPANY-FR200702000644

PATIENT
  Age: 75 Year
  Sex: Female

DRUGS (2)
  1. FORTEO [Suspect]
     Indication: OSTEOPOROSIS
     Dosage: 20 UG, DAILY (1/D)
     Route: 058
     Dates: start: 20061109, end: 20070115
  2. LODINE [Concomitant]
     Indication: BACK PAIN

REACTIONS (4)
  - COUGH [None]
  - MALAISE [None]
  - PHLEBITIS [None]
  - PULMONARY EMBOLISM [None]
